FAERS Safety Report 5732997-1 (Version None)
Quarter: 2008Q2

REPORT INFORMATION
  Report Type: 
  Country: None (occurrence: None)
  Receive Date: 20080509
  Receipt Date: 20080430
  Transmission Date: 20081010
  Serious: Yes (Hospitalization)
  Sender: FDA-Public Use
  Company Number: DE-JNJFOC-20080304546

PATIENT
  Sex: Female
  Weight: 49 kg

DRUGS (4)
  1. HALDOL DECANOAT [Suspect]
     Route: 030
  2. HALDOL DECANOAT [Suspect]
     Indication: SCHIZOAFFECTIVE DISORDER
     Route: 030
  3. QUETIAPIN [Concomitant]
     Indication: SCHIZOAFFECTIVE DISORDER
     Route: 048
  4. VALPROATE SODIUM [Concomitant]
     Indication: SCHIZOAFFECTIVE DISORDER
     Route: 048

REACTIONS (3)
  - ACCIDENTAL OVERDOSE [None]
  - DRUG ADMINISTRATION ERROR [None]
  - PHARMACEUTICAL PRODUCT COMPLAINT [None]
